FAERS Safety Report 16247241 (Version 2)
Quarter: 2019Q2

REPORT INFORMATION
  Report Type: Report from Study
  Country: None (occurrence: AR)
  Receive Date: 20190427
  Receipt Date: 20190613
  Transmission Date: 20190711
  Serious: Yes (Other)
  Sender: FDA-Public Use
  Company Number: AR-ABBVIE-19K-007-2761790-00

PATIENT
  Sex: Female

DRUGS (1)
  1. HUMIRA [Suspect]
     Active Substance: ADALIMUMAB
     Indication: HIDRADENITIS
     Route: 058
     Dates: start: 20180918

REACTIONS (6)
  - Pain of skin [Unknown]
  - Furuncle [Recovered/Resolved]
  - Mobility decreased [Unknown]
  - Axillary mass [Unknown]
  - Skin haemorrhage [Recovered/Resolved]
  - Furuncle [Not Recovered/Not Resolved]
